FAERS Safety Report 24029589 (Version 1)
Quarter: 2024Q2

REPORT INFORMATION
  Report Type: Report from Study
  Country: US (occurrence: US)
  Receive Date: 20240628
  Receipt Date: 20240628
  Transmission Date: 20240715
  Serious: Yes (Hospitalization)
  Sender: FDA-Public Use
  Company Number: US-C0168Z03-8610-11607

PATIENT
  Age: 64 Year
  Sex: Male
  Weight: 113.5 kg

DRUGS (3)
  1. REMICADE [Suspect]
     Active Substance: INFLIXIMAB
     Indication: Psoriasis
     Route: 041
     Dates: start: 20110825, end: 20111006
  2. REMICADE [Suspect]
     Active Substance: INFLIXIMAB
     Route: 041
     Dates: start: 20111116, end: 20150226
  3. METHOTREXATE [Suspect]
     Active Substance: METHOTREXATE
     Indication: Product used for unknown indication
     Route: 065

REACTIONS (2)
  - Aortic valve stenosis [Recovered/Resolved]
  - Cardiac failure congestive [Recovered/Resolved with Sequelae]

NARRATIVE: CASE EVENT DATE: 20140813
